FAERS Safety Report 7395618-0 (Version None)
Quarter: 2011Q2

REPORT INFORMATION
  Report Type: 
  Country: None (occurrence: None)
  Receive Date: 20110405
  Receipt Date: 20091125
  Transmission Date: 20111010
  Serious: Yes (Other)
  Sender: FDA-Public Use
  Company Number: PHHY2009DE67687

PATIENT
  Sex: Female

DRUGS (1)
  1. EXTAVIA [Suspect]
     Route: 058
     Dates: start: 20091023

REACTIONS (5)
  - HEAT ILLNESS [None]
  - INFECTION [None]
  - ASTHENIA [None]
  - DEPRESSED MOOD [None]
  - INJECTION SITE ERYTHEMA [None]
